FAERS Safety Report 21895380 (Version 2)
Quarter: 2023Q1

REPORT INFORMATION
  Report Type: Spontaneous
  Country: US (occurrence: US)
  Receive Date: 20230123
  Receipt Date: 20230215
  Transmission Date: 20230418
  Serious: No
  Sender: FDA-Public Use
  Company Number: US-ELI_LILLY_AND_COMPANY-US202301004593

PATIENT
  Sex: Male

DRUGS (1)
  1. TRULICITY [Suspect]
     Active Substance: DULAGLUTIDE
     Indication: Blood glucose fluctuation
     Dosage: 0.75 MG, UNKNOWN
     Route: 065
     Dates: start: 202210

REACTIONS (3)
  - Blood glucose abnormal [Unknown]
  - Hypoacusis [Unknown]
  - Decreased appetite [Unknown]
